FAERS Safety Report 6540212-4 (Version None)
Quarter: 2010Q1

REPORT INFORMATION
  Report Type: 
  Country: None (occurrence: None)
  Receive Date: 20100115
  Receipt Date: 20100108
  Transmission Date: 20100710
  Serious: Yes (Other)
  Sender: FDA-Public Use
  Company Number: FR-JNJFOC-20100103767

PATIENT
  Age: 40 Year
  Sex: Female

DRUGS (3)
  1. REMICADE [Suspect]
     Route: 042
  2. REMICADE [Suspect]
     Indication: PSORIASIS
     Dosage: 3 INFUSIONS
     Route: 042
  3. POLARAMINE NOS [Concomitant]
     Indication: PREMEDICATION

REACTIONS (4)
  - ANAPHYLACTOID REACTION [None]
  - HYPERSENSITIVITY [None]
  - INFUSION RELATED REACTION [None]
  - SKIN TEST NEGATIVE [None]
